FAERS Safety Report 4576033-1 (Version None)
Quarter: 2005Q1

REPORT INFORMATION
  Report Type: 
  Country: None (occurrence: None)
  Receive Date: 20050204
  Receipt Date: 20050131
  Transmission Date: 20050727
  Serious: Yes (Other)
  Sender: FDA-Public Use
  Company Number: 805#1#2005-00003

PATIENT
  Age: 3 Day
  Sex: Female

DRUGS (2)
  1. ALPROSTADIL [Suspect]
     Indication: PATENT DUCTUS ARTERIOSUS
     Route: 041
     Dates: start: 20041113, end: 20041118
  2. LIPO-PGE1 (ALPROSTADIL (PAOD)) [Concomitant]

REACTIONS (2)
  - NEONATAL APNOEIC ATTACK [None]
  - RESPIRATORY RATE INCREASED [None]
